FAERS Safety Report 10173997 (Version 1)
Quarter: 2014Q2

REPORT INFORMATION
  Report Type: Spontaneous
  Country: US (occurrence: US)
  Receive Date: 20140515
  Receipt Date: 20140515
  Transmission Date: 20141212
  Serious: Yes (Hospitalization)
  Sender: FDA-Public Use
  Company Number: US-BRISTOL-MYERS SQUIBB COMPANY-20706222

PATIENT
  Age: 44 Year
  Sex: Female
  Weight: 90.7 kg

DRUGS (2)
  1. ABILIFY [Suspect]
  2. LEXAPRO [Concomitant]

REACTIONS (5)
  - Obesity surgery [Unknown]
  - Rotator cuff repair [Unknown]
  - Mammoplasty [Unknown]
  - Somnolence [Unknown]
  - Drug dose omission [Unknown]
